FAERS Safety Report 6199236-1 (Version None)
Quarter: 2009Q2

REPORT INFORMATION
  Report Type: 
  Country: None (occurrence: None)
  Receive Date: 20090519
  Receipt Date: 20090519
  Transmission Date: 20091009
  Serious: Yes (Hospitalization)
  Sender: FDA-Public Use
  Company Number: None

PATIENT
  Age: 49 Year
  Sex: Female
  Weight: 58.2 kg

DRUGS (9)
  1. ADRIAMYCIN RDF [Suspect]
     Indication: BREAST CANCER
     Dosage: 97.8 MG IV
     Route: 042
     Dates: start: 20090507, end: 20090507
  2. CYTOXAN [Suspect]
     Indication: BREAST CANCER
     Dosage: 978 MG IV
     Route: 042
     Dates: start: 20090507, end: 20090507
  3. HYDROCODONE BITARTRATE [Concomitant]
  4. PROTONIX [Concomitant]
  5. PHENERGAN [Concomitant]
  6. LISINOPRIL [Concomitant]
  7. PRIOLSEC [Concomitant]
  8. ZESTORETIC [Concomitant]
  9. TRAZODONE HCL [Concomitant]

REACTIONS (1)
  - FEBRILE NEUTROPENIA [None]
